FAERS Safety Report 19581917 (Version 2)
Quarter: 2022Q3

REPORT INFORMATION
  Report Type: Report from Study
  Country: US (occurrence: US)
  Receive Date: 20210719
  Receipt Date: 20220803
  Transmission Date: 20221026
  Serious: Yes (Other)
  Sender: FDA-Public Use
  Company Number: US-JAZZ-2021-US-012978

PATIENT
  Sex: Female
  Weight: 68.95 kg

DRUGS (6)
  1. XYREM [Suspect]
     Active Substance: SODIUM OXYBATE
     Indication: Narcolepsy
     Dosage: 3 GRAM, FIRST DOSE
     Route: 048
     Dates: start: 201903, end: 201904
  2. XYREM [Suspect]
     Active Substance: SODIUM OXYBATE
     Indication: Cataplexy
     Dosage: 3.5 GRAM, SECOND DOSE
     Route: 048
     Dates: start: 201903, end: 201904
  3. XYREM [Suspect]
     Active Substance: SODIUM OXYBATE
     Indication: Somnolence
     Dosage: DOSE ADJUSTMENT
     Route: 048
     Dates: start: 201904, end: 201912
  4. XYREM [Suspect]
     Active Substance: SODIUM OXYBATE
     Dosage: 4.5 GRAM, BID
     Route: 048
     Dates: start: 201912
  5. VITAMIN D NOS [Concomitant]
     Active Substance: VITAMIN D NOS
     Indication: Product used for unknown indication
  6. AIMOVIG [Concomitant]
     Active Substance: ERENUMAB-AOOE
     Indication: Product used for unknown indication
     Dosage: UNK

REACTIONS (17)
  - Impaired gastric emptying [Recovering/Resolving]
  - Mallory-Weiss syndrome [Unknown]
  - Mast cell activation syndrome [Unknown]
  - Psoriasis [Unknown]
  - Keratosis pilaris [Unknown]
  - Rhinorrhoea [Unknown]
  - Sneezing [Unknown]
  - Lacrimation increased [Unknown]
  - Temperature intolerance [Unknown]
  - Tinnitus [Unknown]
  - Chest pain [Unknown]
  - Myalgia [Unknown]
  - Muscular weakness [Unknown]
  - Arthralgia [Unknown]
  - Depression [Unknown]
  - Anxiety [Unknown]
  - Coeliac artery compression syndrome [Unknown]
